FAERS Safety Report 6805540-3 (Version None)
Quarter: 2010Q2

REPORT INFORMATION
  Report Type: 
  Country: None (occurrence: None)
  Receive Date: 20100628
  Receipt Date: 20080102
  Transmission Date: 20101027
  Serious: Yes (Other)
  Sender: FDA-Public Use
  Company Number: US-PFIZER INC-2008000930

PATIENT
  Sex: Female

DRUGS (3)
  1. CADUET [Suspect]
     Indication: BLOOD CHOLESTEROL INCREASED
     Dates: start: 20070701, end: 20071224
  2. CADUET [Suspect]
     Indication: BLOOD TRIGLYCERIDES
  3. METFORMIN HCL [Concomitant]

REACTIONS (8)
  - CAPILLARY FRAGILITY [None]
  - ERYTHEMA [None]
  - HEPATITIS [None]
  - OEDEMA PERIPHERAL [None]
  - PAIN IN EXTREMITY [None]
  - SKIN DISCOLOURATION [None]
  - SKIN WARM [None]
  - WEIGHT INCREASED [None]
